FAERS Safety Report 17608206 (Version 1)
Quarter: 2020Q2

REPORT INFORMATION
  Report Type: Spontaneous
  Country: KW (occurrence: KW)
  Receive Date: 20200401
  Receipt Date: 20200401
  Transmission Date: 20200713
  Serious: Yes (Other)
  Sender: FDA-Public Use
  Company Number: KW-LUPIN PHARMACEUTICALS INC.-2020-01534

PATIENT
  Age: 15 Year
  Sex: Male
  Weight: 70 kg

DRUGS (4)
  1. OLANZAPINE. [Suspect]
     Active Substance: OLANZAPINE
     Indication: SCHIZOPHRENIA
     Dosage: UNK
     Route: 065
  2. ARIPIPRAZOLE. [Suspect]
     Active Substance: ARIPIPRAZOLE
     Indication: SCHIZOPHRENIA
     Dosage: UNK
     Route: 065
  3. OLANZAPINE. [Suspect]
     Active Substance: OLANZAPINE
     Dosage: UP TO 20 MG/D OVER 4 WEEKS
     Route: 065
  4. METFORMIN [Suspect]
     Active Substance: METFORMIN HYDROCHLORIDE
     Indication: PRODUCT USED FOR UNKNOWN INDICATION
     Dosage: 500 MILLIGRAM, BID, 2 DIVIDED DOSES
     Route: 065

REACTIONS (3)
  - Weight increased [Recovering/Resolving]
  - Gastrointestinal disorder [Unknown]
  - Drug ineffective [Unknown]
